FAERS Safety Report 5581919-5 (Version None)
Quarter: 2008Q1

REPORT INFORMATION
  Report Type: 
  Country: None (occurrence: None)
  Receive Date: 20080104
  Receipt Date: 20071226
  Transmission Date: 20080703
  Serious: Yes (Other)
  Sender: FDA-Public Use
  Company Number: US-PFIZER INC-2008000208

PATIENT
  Sex: Female
  Weight: 87.5 kg

DRUGS (3)
  1. CHANTIX [Suspect]
     Indication: SMOKING CESSATION THERAPY
     Dates: start: 20071118, end: 20071223
  2. ARTICAINE [Interacting]
     Indication: ANAESTHESIA
     Dates: start: 20071223, end: 20071223
  3. TYLENOL [Concomitant]

REACTIONS (5)
  - DENTAL CARIES [None]
  - DRUG INEFFECTIVE [None]
  - DRUG INTERACTION [None]
  - MEDICATION ERROR [None]
  - PROCEDURAL COMPLICATION [None]
